FAERS Safety Report 5289096-5 (Version None)
Quarter: 2007Q1

REPORT INFORMATION
  Report Type: 
  Country: None (occurrence: None)
  Receive Date: 20070122
  Receipt Date: 20061121
  Transmission Date: 20070707
  Serious: Yes (Other)
  Sender: FDA-Public Use
  Company Number: PHEH2006US14497

PATIENT
  Age: 95 Year
  Sex: Female

DRUGS (5)
  1. SANDOSTATIN LAR [Suspect]
     Indication: CARCINOID SYNDROME
     Dosage: 30 MG Q28DAYS, INTRAMUSCULAR
     Route: 030
     Dates: start: 20061024, end: 20061121
  2. DIOVAN [Concomitant]
  3. LEVOTHYROXINE SODIUM [Concomitant]
  4. HYDROCHLOROTHIAZIDE [Concomitant]
  5. K-DUR 10 [Concomitant]

REACTIONS (2)
  - CARDIAC ENZYMES INCREASED [None]
  - MYOCARDIAL INFARCTION [None]
